FAERS Safety Report 5254951-9 (Version None)
Quarter: 2007Q1

REPORT INFORMATION
  Report Type: 
  Country: None (occurrence: None)
  Receive Date: 20070302
  Receipt Date: 20070302
  Transmission Date: 20070707
  Serious: Yes (Hospitalization)
  Sender: FDA-Public Use
  Company Number: None

PATIENT
  Sex: Female
  Weight: 50.6214 kg

DRUGS (13)
  1. GEMCITABINE [Suspect]
     Indication: PANCREATIC CARCINOMA METASTATIC
     Dosage: 100MG/M2 DAY 1 + 15 IV DRIP
     Route: 041
     Dates: start: 20060405, end: 20070109
  2. CISPLATIN [Suspect]
     Indication: PANCREATIC CARCINOMA METASTATIC
     Dosage: 20MG/M2 DAY 1 + 15 IV DRIP
     Route: 041
     Dates: start: 20060405, end: 20070109
  3. BEVACIZUMAB 25MG/ML GENENTECH [Suspect]
     Indication: PANCREATIC CARCINOMA METASTATIC
     Dosage: 10MG/KG DAY 1 + 15 IV DRIP
     Route: 041
     Dates: start: 20060405, end: 20070109
  4. ATENOLOL [Concomitant]
  5. MAXZIDE [Concomitant]
  6. MECLIZINE [Concomitant]
  7. CLONIDINE [Concomitant]
  8. LORAZEPAM [Concomitant]
  9. PEPCID [Concomitant]
  10. VICODIN [Concomitant]
  11. COMPAZINE [Concomitant]
  12. MS CONTIN [Concomitant]
  13. SODIUM BICARBONATE [Concomitant]

REACTIONS (4)
  - ABDOMINAL PAIN [None]
  - INTESTINAL PERFORATION [None]
  - NAUSEA [None]
  - RENAL FAILURE ACUTE [None]
